FAERS Safety Report 25536702 (Version 1)
Quarter: 2025Q3

REPORT INFORMATION
  Report Type: Spontaneous
  Country: EU (occurrence: EU)
  Receive Date: 20250709
  Receipt Date: 20250709
  Transmission Date: 20251020
  Serious: Yes (Other)
  Sender: SANDOZ
  Company Number: EU-SANDOZ-SDZ2025DE047636

PATIENT
  Age: 48 Year
  Sex: Female

DRUGS (2)
  1. AZITHROMYCIN [Suspect]
     Active Substance: AZITHROMYCIN
     Indication: Product used for unknown indication
     Dosage: UNK, QD
     Route: 065
     Dates: start: 2024
  2. DOXYCYCLINE [Suspect]
     Active Substance: DOXYCYCLINE
     Indication: Product used for unknown indication
     Dosage: UNK, ONCE DAILY IN THE MORNING
     Route: 065

REACTIONS (12)
  - Pneumonia [Unknown]
  - Urinary retention [Unknown]
  - Chromaturia [Unknown]
  - Stress [Unknown]
  - Dry throat [Unknown]
  - Dizziness [Unknown]
  - Chest pain [Unknown]
  - Pain in extremity [Unknown]
  - Dry mouth [Unknown]
  - Gastrointestinal disorder [Unknown]
  - Diarrhoea [Unknown]
  - Arthralgia [Unknown]
